FAERS Safety Report 7734237-0 (Version None)
Quarter: 2011Q3

REPORT INFORMATION
  Report Type: 
  Country: None (occurrence: None)
  Receive Date: 20110907
  Receipt Date: 20110830
  Transmission Date: 20111222
  Serious: Yes (Other)
  Sender: FDA-Public Use
  Company Number: DE-PFIZER INC-2011111956

PATIENT
  Age: 52 Year
  Sex: Male

DRUGS (8)
  1. ATACAND [Concomitant]
     Indication: PROPHYLAXIS
  2. ATACAND [Concomitant]
     Indication: HYPERTENSION
     Dosage: 16 MG, DAILY
     Dates: start: 20110101
  3. BISOPROLOL [Concomitant]
     Indication: ARRHYTHMIA
     Dosage: 1.25 MG, DAILY
  4. AMIODARONE HCL [Suspect]
     Indication: ATRIAL FIBRILLATION
     Dosage: 200 MG TO 400 MG/DAY
     Route: 048
     Dates: start: 20100601
  5. MARCUMAR [Concomitant]
     Indication: ATRIAL FIBRILLATION
  6. ATACAND HCT [Concomitant]
     Indication: PROPHYLAXIS
  7. AMIODARONE HCL [Suspect]
     Indication: CARDIAC ABLATION
  8. ATACAND HCT [Concomitant]
     Indication: HYPERTENSION
     Dosage: 8/6.75 MG/DAY
     Dates: start: 20110101

REACTIONS (2)
  - HYPOTHYROIDISM [None]
  - PULMONARY HYPERTENSION [None]
